FAERS Safety Report 5207648-5 (Version None)
Quarter: 2007Q1

REPORT INFORMATION
  Report Type: 
  Country: None (occurrence: None)
  Receive Date: 20070112
  Receipt Date: 20070103
  Transmission Date: 20070707
  Serious: Yes (Other)
  Sender: FDA-Public Use
  Company Number: US-PFIZER INC-2006142145

PATIENT
  Sex: Female
  Weight: 74.8 kg

DRUGS (6)
  1. CHANTIX [Suspect]
     Indication: SMOKING CESSATION THERAPY
     Dates: start: 20061105, end: 20061113
  2. CHANTIX [Suspect]
  3. PREDNISONE TAB [Suspect]
     Indication: EYE DISORDER
  4. MIRAPEX [Concomitant]
  5. TAPAZOLE [Concomitant]
  6. AMITRIPTYLINE HCL [Concomitant]

REACTIONS (4)
  - EXTRASYSTOLES [None]
  - HEADACHE [None]
  - HEART RATE INCREASED [None]
  - RASH GENERALISED [None]
